FAERS Safety Report 5915819-5 (Version None)
Quarter: 2008Q4

REPORT INFORMATION
  Report Type: 
  Country: None (occurrence: None)
  Receive Date: 20081010
  Receipt Date: 20081002
  Transmission Date: 20090506
  Serious: Yes (Hospitalization)
  Sender: FDA-Public Use
  Company Number: JP-PFIZER INC-2008081441

PATIENT
  Sex: Female

DRUGS (10)
  1. LIPITOR [Suspect]
     Indication: HYPERLIPIDAEMIA
     Route: 048
     Dates: end: 20080901
  2. BLOPRESS [Suspect]
     Indication: HYPERTENSION
     Route: 048
     Dates: end: 20080916
  3. SHAKUYAKUKANZOUBUSHITOU [Suspect]
     Dosage: TEXT:2 (DF)/DAY
     Route: 048
     Dates: end: 20080907
  4. HOCHUUEKKITOU [Suspect]
     Indication: DEPRESSION
     Dosage: TEXT:2 (DF)/DAY
     Route: 048
     Dates: end: 20080907
  5. LUVOX [Concomitant]
     Indication: DEPRESSION
     Route: 048
     Dates: end: 20080914
  6. ATELEC [Concomitant]
     Indication: HYPERTENSION
     Route: 048
     Dates: end: 20080914
  7. RISEDRONATE SODIUM HYDRATE [Concomitant]
     Indication: OSTEOPOROSIS
     Route: 048
     Dates: end: 20080907
  8. DEPAS [Concomitant]
     Indication: DEPRESSION
     Route: 048
     Dates: end: 20080914
  9. ALSIODOL [Concomitant]
     Indication: OSTEOPOROSIS
     Route: 048
     Dates: end: 20080907
  10. LOXOPROFEN SODIUM [Concomitant]
     Indication: OSTEOPOROSIS
     Route: 048
     Dates: end: 20080907

REACTIONS (2)
  - HYPOKALAEMIA [None]
  - RHABDOMYOLYSIS [None]
